FAERS Safety Report 10070179 (Version 1)
Quarter: 2014Q2

REPORT INFORMATION
  Report Type: Spontaneous
  Country: US (occurrence: None)
  Receive Date: 20140409
  Receipt Date: 20140409
  Transmission Date: 20141212
  Serious: Yes (Other)
  Sender: FDA-Public Use
  Company Number: None

PATIENT
  Age: 65 Year
  Sex: Male

DRUGS (1)
  1. XTANDI [Suspect]
     Indication: PROSTATE CANCER
     Dosage: 07/13/2013-04/17/2014?160MG DAILY PO
     Route: 048
     Dates: start: 20130713

REACTIONS (2)
  - Prostate cancer [None]
  - Condition aggravated [None]
